FAERS Safety Report 15917666 (Version 1)
Quarter: 2019Q1

REPORT INFORMATION
  Report Type: Spontaneous
  Country: AE (occurrence: AE)
  Receive Date: 20190205
  Receipt Date: 20190205
  Transmission Date: 20190417
  Serious: Yes (Other)
  Sender: FDA-Public Use
  Company Number: AE-ASTRAZENECA-2019SE17546

PATIENT
  Age: 13154 Day
  Sex: Female

DRUGS (1)
  1. FASLODEX [Suspect]
     Active Substance: FULVESTRANT
     Dosage: 250MG/ML MONTHLY
     Route: 030
     Dates: start: 20180416, end: 20190128

REACTIONS (2)
  - Malignant neoplasm progression [Unknown]
  - Breast cancer [None]

NARRATIVE: CASE EVENT DATE: 20190128
